FAERS Safety Report 24327058 (Version 1)
Quarter: 2024Q3

REPORT INFORMATION
  Report Type: Report from Study
  Country: DE (occurrence: DE)
  Receive Date: 20240917
  Receipt Date: 20240917
  Transmission Date: 20241017
  Serious: Yes (Other)
  Sender: AUROBINDO
  Company Number: DE-ARISTO PHARMA-CODE-LEVOM-LORA-MORP202103131

PATIENT
  Age: 28 Year
  Sex: Male

DRUGS (8)
  1. DIAZEPAM [Interacting]
     Active Substance: DIAZEPAM
     Indication: Product used for unknown indication
     Dosage: UNK
     Route: 065
  2. CODEINE [Interacting]
     Active Substance: CODEINE
     Indication: Product used for unknown indication
     Dosage: UNK
     Route: 065
  3. LEVOMETHADONE [Interacting]
     Active Substance: LEVOMETHADONE
     Indication: Product used for unknown indication
     Dosage: UNK
     Route: 065
  4. LORAZEPAM [Interacting]
     Active Substance: LORAZEPAM
     Indication: Product used for unknown indication
     Dosage: UNK
     Route: 065
  5. MORPHINE [Interacting]
     Active Substance: MORPHINE
     Indication: Product used for unknown indication
     Dosage: UNK
     Route: 065
  6. NORDAZEPAM [Interacting]
     Active Substance: NORDAZEPAM
     Indication: Product used for unknown indication
     Dosage: UNK
     Route: 065
  7. OXAZEPAM [Interacting]
     Active Substance: OXAZEPAM
     Indication: Product used for unknown indication
     Dosage: UNK
     Route: 065
  8. TEMAZEPAM [Interacting]
     Active Substance: TEMAZEPAM
     Indication: Product used for unknown indication
     Dosage: UNK
     Route: 065

REACTIONS (15)
  - Nervousness [Unknown]
  - Agitation [Unknown]
  - Aggression [Unknown]
  - Restlessness [Unknown]
  - Miosis [Unknown]
  - Drug interaction [Unknown]
  - Drug dependence [Unknown]
  - Abnormal behaviour [Unknown]
  - Drug abuse [Unknown]
  - Substance abuse [Unknown]
  - Logorrhoea [Unknown]
  - Toxicity to various agents [Unknown]
  - Bradyphrenia [Unknown]
  - Memory impairment [Unknown]
  - Potentiating drug interaction [Unknown]
